FAERS Safety Report 6257970-9 (Version None)
Quarter: 2009Q3

REPORT INFORMATION
  Report Type: 
  Country: None (occurrence: None)
  Receive Date: 20090707
  Receipt Date: 20090626
  Transmission Date: 20100115
  Serious: Yes (Death)
  Sender: FDA-Public Use
  Company Number: DE-JNJFOC-20090609145

PATIENT
  Sex: Male
  Weight: 100 kg

DRUGS (1)
  1. BETADORM-D [Suspect]
     Indication: DRUG USE FOR UNKNOWN INDICATION
     Route: 048

REACTIONS (4)
  - COMPLETED SUICIDE [None]
  - FALL [None]
  - INTENTIONAL OVERDOSE [None]
  - RIB FRACTURE [None]
